FAERS Safety Report 8176227-2 (Version None)
Quarter: 2012Q1

REPORT INFORMATION
  Report Type: 
  Country: None (occurrence: None)
  Receive Date: 20120301
  Receipt Date: 20120221
  Transmission Date: 20120608
  Serious: Yes (Other)
  Sender: FDA-Public Use
  Company Number: US-JNJFOC-20120210694

PATIENT
  Sex: Female
  Weight: 90.72 kg

DRUGS (4)
  1. METHOTREXATE [Concomitant]
     Dosage: 1 PUFF BID INHALATION
     Route: 048
     Dates: start: 20090501
  2. FOLIC ACID [Concomitant]
     Dosage: 1 PUFF BID INHALATION
     Route: 048
     Dates: start: 20090501
  3. REMICADE [Suspect]
     Indication: RHEUMATOID ARTHRITIS
     Route: 042
     Dates: start: 20090501
  4. ADVAIR DISKUS 250/50 [Concomitant]
     Indication: ASTHMA
     Dosage: 1 PUFF BID INHALATION
     Route: 055

REACTIONS (5)
  - IMMUNE SYSTEM DISORDER [None]
  - ABSCESS [None]
  - BRONCHITIS [None]
  - IMPAIRED HEALING [None]
  - PRURITUS [None]
